FAERS Safety Report 6133375-6 (Version None)
Quarter: 2009Q1

REPORT INFORMATION
  Report Type: 
  Country: None (occurrence: None)
  Receive Date: 20090326
  Receipt Date: 20090316
  Transmission Date: 20090719
  Serious: Yes (Hospitalization, Other)
  Sender: FDA-Public Use
  Company Number: CA-ELI_LILLY_AND_COMPANY-CA200901004752

PATIENT
  Sex: Female

DRUGS (19)
  1. FORTEO [Suspect]
     Indication: OSTEOPOROSIS
     Dosage: 20 UG, DAILY (1/D)
     Route: 058
     Dates: start: 20080602
  2. ADALAT [Concomitant]
  3. CLOBAZAM [Concomitant]
  4. VITAMIN C                          /00008001/ [Concomitant]
  5. ACCOLATE [Concomitant]
  6. CALCIUM                                 /N/A/ [Concomitant]
  7. VITAMIN E /001105/ [Concomitant]
  8. XALATAN [Concomitant]
  9. ALPHAGAN [Concomitant]
  10. PREDNISONE                         /00044701/ [Concomitant]
  11. OMEPRAZOLE [Concomitant]
  12. TOBRADEX [Concomitant]
  13. TEAR-GEL [Concomitant]
  14. PAMIDRONATE DISODIUM [Concomitant]
  15. FUROSEMIDE [Concomitant]
  16. ROCALTROL [Concomitant]
  17. CALCITONIN [Concomitant]
  18. GRAVOL TAB [Concomitant]
  19. DEMEROL [Concomitant]
     Dosage: UNK, AS NEEDED

REACTIONS (5)
  - ADVERSE DRUG REACTION [None]
  - DIARRHOEA [None]
  - LOCALISED INFECTION [None]
  - NAIL INFECTION [None]
  - POOR PERIPHERAL CIRCULATION [None]
